FAERS Safety Report 5380990-3 (Version None)
Quarter: 2007Q3

REPORT INFORMATION
  Report Type: 
  Country: None (occurrence: None)
  Receive Date: 20070702
  Receipt Date: 20070323
  Transmission Date: 20080115
  Serious: Yes (Hospitalization)
  Sender: FDA-Public Use
  Company Number: SPV1-2006-02322

PATIENT
  Age: 49 Year
  Sex: Male

DRUGS (6)
  1. PENTASA [Suspect]
     Indication: COLITIS ULCERATIVE
     Dosage: 1250 MG 3XS DAILY, ORAL
     Route: 048
     Dates: start: 20060111, end: 20061223
  2. AZATHIOPRINE [Concomitant]
  3. CARBOCISTEIN (CARBOCISTEINE) [Concomitant]
  4. MEQUITAZINE (MEQUITAZINE) [Concomitant]
  5. SUPLATAST TOSILATE (SUPLATAST TOSILATE) [Concomitant]
  6. LANSOPRAZOLE [Concomitant]

REACTIONS (1)
  - PYREXIA [None]
